FAERS Safety Report 7981036-0 (Version None)
Quarter: 2011Q4

REPORT INFORMATION
  Report Type: 
  Country: None (occurrence: None)
  Receive Date: 20111215
  Receipt Date: 20111209
  Transmission Date: 20120403
  Serious: No
  Sender: FDA-Public Use
  Company Number: US-BIOGENIDEC-2011BI046994

PATIENT
  Age: 53 Year
  Sex: Female

DRUGS (1)
  1. TYSABRI [Suspect]
     Indication: CROHN'S DISEASE
     Route: 042
     Dates: start: 20110314, end: 20110919

REACTIONS (3)
  - MIGRAINE [None]
  - DIARRHOEA [None]
  - PAIN IN EXTREMITY [None]
